FAERS Safety Report 6965555-1 (Version None)
Quarter: 2010Q3

REPORT INFORMATION
  Report Type: 
  Country: None (occurrence: None)
  Receive Date: 20100903
  Receipt Date: 20100825
  Transmission Date: 20110219
  Serious: Yes (Other)
  Sender: FDA-Public Use
  Company Number: US-ELI_LILLY_AND_COMPANY-US201008008265

PATIENT
  Sex: Female

DRUGS (3)
  1. ALIMTA [Suspect]
     Dosage: 500 MG/M2, UNK
     Route: 042
     Dates: start: 20100405, end: 20100426
  2. CISPLATIN [Concomitant]
     Indication: LUNG NEOPLASM MALIGNANT
     Dosage: 150 MG, UNK
     Route: 042
     Dates: start: 20100405, end: 20100426
  3. THERAPEUTIC RADIOPHARMACEUTICALS [Concomitant]

REACTIONS (2)
  - RADIATION OESOPHAGITIS [None]
  - RENAL FAILURE [None]
